FAERS Safety Report 7294503-2 (Version None)
Quarter: 2011Q1

REPORT INFORMATION
  Report Type: 
  Country: None (occurrence: None)
  Receive Date: 20110216
  Receipt Date: 20110204
  Transmission Date: 20110831
  Serious: No
  Sender: FDA-Public Use
  Company Number: US-BIOGENIDEC-2010BI012709

PATIENT
  Age: 56 Year
  Sex: Male

DRUGS (1)
  1. TYSABRI [Suspect]
     Indication: MULTIPLE SCLEROSIS
     Route: 042
     Dates: start: 20080813

REACTIONS (9)
  - RASH [None]
  - ASTHENIA [None]
  - DYSPNOEA [None]
  - MUSCULOSKELETAL STIFFNESS [None]
  - FATIGUE [None]
  - DRUG EFFECT DECREASED [None]
  - MUSCULAR WEAKNESS [None]
  - NASOPHARYNGITIS [None]
  - HERPES ZOSTER [None]
